FAERS Safety Report 7527721-6 (Version None)
Quarter: 2011Q2

REPORT INFORMATION
  Report Type: 
  Country: None (occurrence: None)
  Receive Date: 20110527
  Receipt Date: 20110513
  Transmission Date: 20111010
  Serious: Yes (Hospitalization)
  Sender: FDA-Public Use
  Company Number: DSJ-2011-00404

PATIENT
  Age: 73 Year
  Sex: Male
  Weight: 64 kg

DRUGS (6)
  1. LOXOMARIN (LOXOPROFEN SODIUM) (LOXOPROFEN SODIUM) [Suspect]
     Dosage: 180 MG
     Dates: end: 20110103
  2. OLMESARTAN MEDOXOMIL [Suspect]
     Indication: ESSENTIAL HYPERTENSION
     Dosage: 20 MG,PER ORAL ; PER ORAL
     Route: 048
     Dates: start: 20100717, end: 20110103
  3. MYORELARK (EPERISONE HYDROCHLORDIE) (EPERISONE HYDROCHLORIDE) [Suspect]
     Dosage: 150
     Dates: end: 20110103
  4. LACMARZE (CETRAXATE HYDROCHLORIDE) (CAPSULE) (CETRAXATE HYDROCHLORIDE) [Suspect]
     Dosage: 600 MG
     Dates: end: 20110103
  5. NORVASC [Concomitant]
  6. MECOBALAMIN  (MECOBALAMIN) (MECOBALAMIN) [Suspect]
     Dosage: 1.5 MG
     Dates: end: 20110103

REACTIONS (1)
  - HEPATITIS ACUTE [None]
